FAERS Safety Report 9890005 (Version 1)
Quarter: 2014Q1

REPORT INFORMATION
  Report Type: Spontaneous
  Country: US (occurrence: US)
  Receive Date: 20140212
  Receipt Date: 20140212
  Transmission Date: 20141002
  Serious: No
  Sender: FDA-Public Use
  Company Number: US-BIOGENIDEC-2014BI010882

PATIENT
  Sex: Female

DRUGS (14)
  1. TECFIDERA [Suspect]
     Indication: MULTIPLE SCLEROSIS
     Route: 048
     Dates: start: 20140119
  2. TECFIDERA [Suspect]
     Indication: MULTIPLE SCLEROSIS
     Route: 048
  3. METFORMIN HCL [Concomitant]
  4. GABAPENTIN [Concomitant]
  5. LISINOPRIL [Concomitant]
  6. BACLOFEN [Concomitant]
  7. CRESTOR [Concomitant]
  8. BUPROPION HCL [Concomitant]
  9. METOPROLOL SUCC ER [Concomitant]
  10. ASPIRIN [Concomitant]
  11. PROZAC [Concomitant]
  12. EQL SENNA LAXATIVE [Concomitant]
  13. CVS OMEPRAZOLE DR [Concomitant]
  14. CVS VITAMIN D [Concomitant]

REACTIONS (3)
  - Musculoskeletal pain [Unknown]
  - Pain in extremity [Unknown]
  - Abdominal discomfort [Unknown]
